FAERS Safety Report 7520847-2 (Version None)
Quarter: 2011Q2

REPORT INFORMATION
  Report Type: 
  Country: None (occurrence: None)
  Receive Date: 20110603
  Receipt Date: 20100916
  Transmission Date: 20111010
  Serious: Yes (Hospitalization)
  Sender: FDA-Public Use
  Company Number: PL-BAYER-201040332GPV

PATIENT
  Sex: Female
  Weight: 83 kg

DRUGS (2)
  1. ESTRADIOL VALERATE/DIENOGEST [Suspect]
     Indication: PRODUCT USED FOR UNKNOWN INDICATION
     Route: 048
  2. MERIDIA [Suspect]
     Indication: PRODUCT USED FOR UNKNOWN INDICATION
     Dosage: 15 MG (DAILY DOSE), , ORAL
     Route: 048

REACTIONS (2)
  - PREGNANCY ON ORAL CONTRACEPTIVE [None]
  - INTRA-UTERINE DEATH [None]
